FAERS Safety Report 6286358-X (Version None)
Quarter: 2009Q3

REPORT INFORMATION
  Report Type: 
  Country: None (occurrence: None)
  Receive Date: 20090727
  Receipt Date: 20090727
  Transmission Date: 20100115
  Serious: Yes (Other)
  Sender: FDA-Public Use
  Company Number: None

PATIENT
  Age: 67 Year
  Sex: Female
  Weight: 95.5 kg

DRUGS (5)
  1. FEMARA [Suspect]
     Indication: BREAST CANCER
     Dosage: 2.5 MG 1 DAILY BY MOUTH
     Route: 048
     Dates: start: 20090529, end: 20090629
  2. VITAMINS (B12-B-D-C) [Concomitant]
  3. CALCIUM [Concomitant]
  4. ZINC [Concomitant]
  5. LISINOPRIL [Concomitant]

REACTIONS (5)
  - ABDOMINAL PAIN UPPER [None]
  - DEPRESSION [None]
  - GASTRIC ULCER [None]
  - PERSONALITY CHANGE [None]
  - PREMENSTRUAL SYNDROME [None]
